FAERS Safety Report 7335415-5 (Version None)
Quarter: 2011Q1

REPORT INFORMATION
  Report Type: 
  Country: None (occurrence: None)
  Receive Date: 20110307
  Receipt Date: 20110222
  Transmission Date: 20110831
  Serious: Yes (Hospitalization)
  Sender: FDA-Public Use
  Company Number: PHHY2011GB14124

PATIENT
  Age: 66 Year

DRUGS (2)
  1. AMLODIPINE [Suspect]
  2. BENDROFLUAZIDE [Concomitant]

REACTIONS (1)
  - PORTAL VEIN THROMBOSIS [None]
